FAERS Safety Report 6337891-3 (Version None)
Quarter: 2009Q3

REPORT INFORMATION
  Report Type: 
  Country: None (occurrence: None)
  Receive Date: 20090902
  Receipt Date: 20090828
  Transmission Date: 20100115
  Serious: Yes (Other)
  Sender: FDA-Public Use
  Company Number: JP-ELI_LILLY_AND_COMPANY-JP200908006426

PATIENT
  Sex: Female
  Weight: 56 kg

DRUGS (6)
  1. SOMATROPIN [Suspect]
     Indication: GROWTH HORMONE DEFICIENCY
     Dosage: 0.17 MG, DAILY (1/D)
     Route: 058
     Dates: start: 20060706, end: 20070820
  2. SOMATROPIN [Suspect]
     Dosage: 0.2 MG, DAILY (1/D)
     Route: 058
     Dates: start: 20070821, end: 20080429
  3. THYRADIN S [Concomitant]
     Indication: SECONDARY HYPOTHYROIDISM
     Dosage: 75 UG, DAILY (1/D)
     Route: 048
     Dates: start: 20030829
  4. CORTRIL [Concomitant]
     Indication: SECONDARY ADRENOCORTICAL INSUFFICIENCY
     Dosage: 15 MG, DAILY (1/D)
     Route: 048
     Dates: start: 20030829
  5. EXCEGRAN [Concomitant]
     Indication: EPILEPSY
     Dosage: 150 MG, DAILY (1/D)
     Route: 048
     Dates: start: 19980101
  6. MYSTAN [Concomitant]
     Indication: EPILEPSY
     Dosage: 5 MG, DAILY (1/D)
     Route: 048
     Dates: start: 19980101

REACTIONS (1)
  - MALIGNANT GLIOMA [None]
